FAERS Safety Report 6272654-9 (Version None)
Quarter: 2009Q3

REPORT INFORMATION
  Report Type: 
  Country: None (occurrence: None)
  Receive Date: 20090717
  Receipt Date: 20090709
  Transmission Date: 20100115
  Serious: Yes (Other)
  Sender: FDA-Public Use
  Company Number: FR-CELGENEUS-056-21880-09061548

PATIENT
  Sex: Male
  Weight: 90 kg

DRUGS (4)
  1. REVLIMID [Suspect]
     Indication: MULTIPLE MYELOMA
     Route: 048
     Dates: start: 20090423, end: 20090501
  2. REVLIMID [Suspect]
     Route: 048
     Dates: start: 20090618
  3. DEXAMETHASONE [Concomitant]
     Indication: MULTIPLE MYELOMA
     Route: 048
     Dates: start: 20090423
  4. KARDEGIC [Concomitant]
     Indication: PROPHYLAXIS

REACTIONS (1)
  - PSORIASIS [None]
